FAERS Safety Report 13105841 (Version 1)
Quarter: 2017Q1

REPORT INFORMATION
  Report Type: Spontaneous
  Country: US (occurrence: US)
  Receive Date: 20170111
  Receipt Date: 20170111
  Transmission Date: 20170428
  Serious: Yes (Other)
  Sender: FDA-Public Use
  Company Number: US-GILEAD-2017-0252280

PATIENT
  Age: 48 Year
  Sex: Female

DRUGS (14)
  1. METHYLPREDNISOLONE. [Concomitant]
     Active Substance: METHYLPREDNISOLONE
  2. CLONIDINE. [Concomitant]
     Active Substance: CLONIDINE
  3. VALSARTAN. [Concomitant]
     Active Substance: VALSARTAN
  4. CIPROFLOXACIN. [Concomitant]
     Active Substance: CIPROFLOXACIN
  5. SOFOSBUVIR [Suspect]
     Active Substance: SOFOSBUVIR
     Indication: HEPATITIS C VIRUS TEST POSITIVE
     Dosage: 400 MG, QD
     Route: 048
  6. SIMEPREVIR [Concomitant]
     Active Substance: SIMEPREVIR
     Indication: HEPATITIS C VIRUS TEST POSITIVE
     Dosage: 150 MG, QD
  7. HYDROXYCHLOROQUINE [Concomitant]
     Active Substance: HYDROXYCHLOROQUINE
  8. ASPIRIN                            /00002701/ [Concomitant]
     Active Substance: ASPIRIN
  9. AZATHIOPRINE. [Concomitant]
     Active Substance: AZATHIOPRINE
  10. PREDNISONE. [Concomitant]
     Active Substance: PREDNISONE
  11. FOLIC ACID. [Concomitant]
     Active Substance: FOLIC ACID
  12. FUROSEMIDE. [Concomitant]
     Active Substance: FUROSEMIDE
  13. SPIRONOLACTONE. [Concomitant]
     Active Substance: SPIRONOLACTONE
  14. RITUXIMAB [Concomitant]
     Active Substance: RITUXIMAB

REACTIONS (1)
  - Glomerulonephritis [Unknown]
